FAERS Safety Report 7437758-3 (Version None)
Quarter: 2011Q2

REPORT INFORMATION
  Report Type: 
  Country: None (occurrence: None)
  Receive Date: 20110426
  Receipt Date: 20110418
  Transmission Date: 20111010
  Serious: Yes (Hospitalization)
  Sender: FDA-Public Use
  Company Number: FR-PFIZER INC-2011084365

PATIENT
  Age: 58 Year
  Sex: Female

DRUGS (7)
  1. TRIMEPRAZINE TARTRATE [Concomitant]
  2. ATARAX [Concomitant]
  3. LEVOTHYROX [Concomitant]
  4. ABILIFY [Concomitant]
  5. LYRICA [Suspect]
     Dosage: UNK
     Dates: start: 20110131, end: 20110204
  6. LYSANXIA [Concomitant]
  7. AKINETON [Concomitant]

REACTIONS (4)
  - RENAL FAILURE [None]
  - HYPOCHLORAEMIA [None]
  - HYPONATRAEMIA [None]
  - HYPOKALAEMIA [None]
